FAERS Safety Report 4911079-2 (Version None)
Quarter: 2006Q1

REPORT INFORMATION
  Report Type: 
  Country: None (occurrence: None)
  Receive Date: 20060209
  Receipt Date: 20060120
  Transmission Date: 20060701
  Serious: Yes (Hospitalization)
  Sender: FDA-Public Use
  Company Number: NZ200601004091

PATIENT
  Age: 47 Year
  Sex: Male

DRUGS (3)
  1. ZYPREXA [Suspect]
     Indication: SCHIZOPHRENIA
     Dosage: 5 + 20 + 10MG, DAILY (1/D), ORAL
     Route: 048
     Dates: start: 20050501, end: 20060113
  2. ZYPREXA [Suspect]
     Indication: SCHIZOPHRENIA
     Dosage: 5 + 20 + 10MG, DAILY (1/D), ORAL
     Route: 048
     Dates: start: 20060114, end: 20060119
  3. ZYPREXA [Suspect]
     Indication: SCHIZOPHRENIA
     Dosage: 5 + 20 + 10MG, DAILY (1/D), ORAL
     Route: 048
     Dates: start: 20060120

REACTIONS (2)
  - BLOOD GLUCOSE INCREASED [None]
  - MENTAL IMPAIRMENT [None]
